FAERS Safety Report 15326593 (Version 2)
Quarter: 2018Q3

REPORT INFORMATION
  Report Type: Spontaneous
  Country: JP (occurrence: JP)
  Receive Date: 20180828
  Receipt Date: 20180907
  Transmission Date: 20181010
  Serious: Yes (Hospitalization)
  Sender: FDA-Public Use
  Company Number: JP-BRISTOL-MYERS SQUIBB COMPANY-BMS-2018-078823

PATIENT
  Age: 77 Year
  Sex: Female

DRUGS (5)
  1. METGLUCO [Suspect]
     Active Substance: METFORMIN HYDROCHLORIDE
     Indication: DIABETES MELLITUS
     Route: 048
  2. EBUTOL                             /00022301/ [Concomitant]
     Indication: TUBERCULOSIS
     Route: 065
  3. RIFAMPICIN [Concomitant]
     Active Substance: RIFAMPIN
     Indication: TUBERCULOSIS
     Route: 065
  4. ISONARIF [Concomitant]
     Active Substance: ISONIAZID\RIFAMPIN
     Indication: TUBERCULOSIS
     Route: 065
  5. PYRAMIDE [Concomitant]
     Active Substance: PYRAZINAMIDE
     Indication: TUBERCULOSIS
     Route: 065

REACTIONS (2)
  - Liver disorder [Not Recovered/Not Resolved]
  - Platelet count decreased [Not Recovered/Not Resolved]
